FAERS Safety Report 6750076-1 (Version None)
Quarter: 2010Q2

REPORT INFORMATION
  Report Type: 
  Country: None (occurrence: None)
  Receive Date: 20100601
  Receipt Date: 20100520
  Transmission Date: 20101027
  Serious: Yes (Other)
  Sender: FDA-Public Use
  Company Number: US-PFIZER INC-2010044759

PATIENT
  Sex: Female
  Weight: 105 kg

DRUGS (7)
  1. LYRICA [Suspect]
     Indication: NEUROPATHY PERIPHERAL
     Dosage: 75 MG, 2X/DAY
     Route: 048
     Dates: start: 20091222, end: 20100101
  2. NEURONTIN [Suspect]
     Dosage: UNK
  3. MICARDIS [Concomitant]
     Dosage: 80 MG, 1X/DAY
  4. TRAVATAN [Concomitant]
     Dosage: UNK
  5. SIMVASTATIN [Concomitant]
     Dosage: 20 MG, 1X/DAY
  6. NEXIUM [Concomitant]
     Dosage: 40 MG, 1X/DAY
  7. VITAMIN B-12 [Concomitant]
     Dosage: UNK

REACTIONS (2)
  - DRUG INEFFECTIVE [None]
  - TUBULOINTERSTITIAL NEPHRITIS [None]
